FAERS Safety Report 23179544 (Version 2)
Quarter: 2023Q4

REPORT INFORMATION
  Report Type: Report from Study
  Country: EG (occurrence: EG)
  Receive Date: 20231114
  Receipt Date: 20231207
  Transmission Date: 20240110
  Serious: Yes (Other)
  Sender: FDA-Public Use
  Company Number: EG-ABBVIE-5488488

PATIENT
  Age: 63 Year
  Sex: Female

DRUGS (7)
  1. HUMIRA [Suspect]
     Active Substance: ADALIMUMAB
     Indication: Crohn^s disease
     Dosage: 1 INJECTION
     Route: 058
     Dates: start: 2020
  2. HUMIRA [Suspect]
     Active Substance: ADALIMUMAB
     Dosage: 1 INJECTION
     Route: 058
     Dates: start: 202310, end: 202311
  3. HUMIRA [Suspect]
     Active Substance: ADALIMUMAB
     Route: 058
     Dates: start: 202312
  4. PENTASA [Concomitant]
     Active Substance: MESALAMINE
     Indication: Product used for unknown indication
     Dosage: 2 TABS AFTER BREAKFAST, LUNCH AND DINNER
     Route: 048
  5. cal mag [Concomitant]
     Indication: Product used for unknown indication
     Dosage: ONCE AFTER DINNER
     Route: 065
  6. BON ONE [Concomitant]
     Indication: Product used for unknown indication
     Dosage: ONCE AFTER LUNCH
     Route: 065
  7. PROLIA [Concomitant]
     Active Substance: DENOSUMAB
     Indication: Product used for unknown indication
     Dosage: 1 INJECTION
     Route: 065

REACTIONS (5)
  - Large intestinal haemorrhage [Recovered/Resolved]
  - Bone pain [Recovered/Resolved]
  - Laboratory test abnormal [Unknown]
  - Illness [Recovered/Resolved]
  - Mobility decreased [Recovered/Resolved]

NARRATIVE: CASE EVENT DATE: 20231001
